FAERS Safety Report 24981178 (Version 3)
Quarter: 2025Q1

REPORT INFORMATION
  Report Type: Spontaneous
  Country: CA (occurrence: None)
  Receive Date: 20250218
  Receipt Date: 20250317
  Transmission Date: 20250409
  Serious: Yes (Other)
  Sender: ORION
  Company Number: CA-PFIZER INC-202500030984

PATIENT
  Age: 39 Year
  Sex: Female

DRUGS (7)
  1. METHOTREXATE [Suspect]
     Active Substance: METHOTREXATE
     Indication: Psoriatic arthropathy
     Dates: start: 2017, end: 2018
  2. METHOTREXATE [Suspect]
     Active Substance: METHOTREXATE
     Dates: start: 202103
  3. FOLIC ACID [Concomitant]
     Active Substance: FOLIC ACID
     Dosage: 6 DAYS A WEEK
  4. LEFLUNOMIDE [Concomitant]
     Active Substance: LEFLUNOMIDE
     Dates: start: 202412
  5. NAPROXEN [Concomitant]
     Active Substance: NAPROXEN
  6. SULFASALAZINE [Concomitant]
     Active Substance: SULFASALAZINE
     Indication: Psoriatic arthropathy
     Dates: start: 202412
  7. TYLENOL [Concomitant]
     Active Substance: ACETAMINOPHEN

REACTIONS (8)
  - Fracture [Unknown]
  - Bone marrow oedema [Unknown]
  - Drug ineffective [Unknown]
  - Treatment failure [Not Recovered/Not Resolved]
  - Gait disturbance [Unknown]
  - Pustule [Unknown]
  - Fibromyalgia [Unknown]
  - C-reactive protein increased [Unknown]
